FAERS Safety Report 15048680 (Version 3)
Quarter: 2018Q3

REPORT INFORMATION
  Report Type: Spontaneous
  Country: US (occurrence: US)
  Receive Date: 20180622
  Receipt Date: 20180912
  Transmission Date: 20181010
  Serious: Yes (Life-Threatening, Hospitalization, Other)
  Sender: FDA-Public Use
  Company Number: US-LUPIN PHARMACEUTICALS INC.-2018-04451

PATIENT
  Age: 22 Year
  Sex: Female

DRUGS (1)
  1. METFORMIN [Suspect]
     Active Substance: METFORMIN HYDROCHLORIDE
     Indication: PRODUCT USED FOR UNKNOWN INDICATION
     Dosage: UNK, SINGLE
     Route: 048

REACTIONS (18)
  - Lactic acidosis [Unknown]
  - Hypothermia [Unknown]
  - Intentional overdose [Unknown]
  - Hypoglycaemia [Unknown]
  - Mydriasis [Unknown]
  - Mental status changes [Unknown]
  - Hypotension [Unknown]
  - Hyperglycaemia [Unknown]
  - Therapy non-responder [Unknown]
  - Anhidrosis [Unknown]
  - Hypertension [Unknown]
  - Tachypnoea [Unknown]
  - Flushing [Unknown]
  - Gastrointestinal sounds abnormal [Unknown]
  - Delirium [Unknown]
  - Electrocardiogram QT prolonged [Unknown]
  - Vasoplegia syndrome [Unknown]
  - Tachycardia [Unknown]
